FAERS Safety Report 7806997-1 (Version None)
Quarter: 2011Q4

REPORT INFORMATION
  Report Type: 
  Country: None (occurrence: None)
  Receive Date: 20111011
  Receipt Date: 20111007
  Transmission Date: 20120403
  Serious: Yes (Death, Congenital Anomaly)
  Sender: FDA-Public Use
  Company Number: DK-TEVA-179745ISR

PATIENT
  Sex: Male

DRUGS (2)
  1. LEVETIRACETAM [Suspect]
     Indication: EPILEPSY
     Dosage: 1500 MILLIGRAM;
     Route: 048
  2. LAMOTRIGINE [Suspect]
     Indication: EPILEPSY
     Dosage: 300 MILLIGRAM;

REACTIONS (8)
  - ABORTION INDUCED [None]
  - LIMB REDUCTION DEFECT [None]
  - OLIGOHYDRAMNIOS [None]
  - POTTER'S SYNDROME [None]
  - MATERNAL EXPOSURE DURING PREGNANCY [None]
  - CONGENITAL GENITAL MALFORMATION [None]
  - CAUDAL REGRESSION SYNDROME [None]
  - RENAL APLASIA [None]
